FAERS Safety Report 7547664-1 (Version None)
Quarter: 2011Q2

REPORT INFORMATION
  Report Type: 
  Country: None (occurrence: None)
  Receive Date: 20110614
  Receipt Date: 20110607
  Transmission Date: 20111010
  Serious: Yes (Hospitalization, Other)
  Sender: FDA-Public Use
  Company Number: US-RB-022090-11

PATIENT
  Age: 40 Year
  Sex: Male

DRUGS (1)
  1. SUBOXONE [Suspect]
     Indication: DRUG DEPENDENCE
     Route: 060
     Dates: start: 20100901, end: 20110211

REACTIONS (6)
  - CARDIAC FAILURE [None]
  - STAPHYLOCOCCAL INFECTION [None]
  - CARDIAC VALVE DISEASE [None]
  - CEREBROVASCULAR ACCIDENT [None]
  - PYREXIA [None]
  - LOSS OF CONSCIOUSNESS [None]
